FAERS Safety Report 6141571-7 (Version None)
Quarter: 2009Q2

REPORT INFORMATION
  Report Type: 
  Country: None (occurrence: None)
  Receive Date: 20090402
  Receipt Date: 20090327
  Transmission Date: 20091009
  Serious: Yes (Hospitalization)
  Sender: FDA-Public Use
  Company Number: A0769375A

PATIENT
  Age: 39 Year
  Sex: Male
  Weight: 95.5 kg

DRUGS (2)
  1. AVANDIA [Suspect]
     Route: 065
  2. AVANDAMET [Suspect]
     Route: 065
     Dates: start: 20050101, end: 20071001

REACTIONS (2)
  - CARDIOVASCULAR DISORDER [None]
  - MYOCARDIAL INFARCTION [None]
